FAERS Safety Report 12839821 (Version 1)
Quarter: 2016Q4

REPORT INFORMATION
  Report Type: Spontaneous
  Country: US (occurrence: US)
  Receive Date: 20161011
  Receipt Date: 20161011
  Transmission Date: 20170207
  Serious: Yes (Life-Threatening, Other)
  Sender: FDA-Public Use
  Company Number: None

PATIENT
  Age: 32 Year
  Sex: Male
  Weight: 84.6 kg

DRUGS (7)
  1. ONE A DAY MENS VITAMINS [Concomitant]
  2. PARNATE [Concomitant]
     Active Substance: TRANYLCYPROMINE SULFATE
  3. BENZEDREX [Suspect]
     Active Substance: PROPYLHEXEDRINE
     Indication: MALAISE
     Dosage: ?          QUANTITY:4 SPRAY(S);OTHER FREQUENCY:ONLY 4;?
     Route: 055
     Dates: start: 20161008, end: 20161008
  4. AMBIEN CR [Concomitant]
     Active Substance: ZOLPIDEM TARTRATE
  5. BENZEDREX [Suspect]
     Active Substance: PROPYLHEXEDRINE
     Indication: NASAL OBSTRUCTION
     Dosage: ?          QUANTITY:4 SPRAY(S);OTHER FREQUENCY:ONLY 4;?
     Route: 055
     Dates: start: 20161008, end: 20161008
  6. MELOTONIN [Concomitant]
  7. KRILL OIL [Concomitant]
     Active Substance: DIETARY SUPPLEMENT

REACTIONS (6)
  - Dizziness [None]
  - Hypertensive crisis [None]
  - Syncope [None]
  - Erythema [None]
  - Drug interaction [None]
  - Hyperhidrosis [None]

NARRATIVE: CASE EVENT DATE: 20161008
